FAERS Safety Report 7867523-4 (Version None)
Quarter: 2011Q4

REPORT INFORMATION
  Report Type: 
  Country: None (occurrence: None)
  Receive Date: 20111021
  Receipt Date: 20111010
  Transmission Date: 20120403
  Serious: Yes (Other)
  Sender: FDA-Public Use
  Company Number: DSA_47730_2011

PATIENT
  Age: 68 Year
  Sex: Female

DRUGS (2)
  1. WELLBUTRIN [Suspect]
     Indication: PRODUCT USED FOR UNKNOWN INDICATION
     Dosage: (150 MG, ROUTE AND FREQUENCY UNKNOWN)
  2. PAROXETINE HCL [Concomitant]

REACTIONS (2)
  - ORAL HERPES [None]
  - STEVENS-JOHNSON SYNDROME [None]
